FAERS Safety Report 19372289 (Version 1)
Quarter: 2021Q2

REPORT INFORMATION
  Report Type: Spontaneous
  Country: US (occurrence: US)
  Receive Date: 20210603
  Receipt Date: 20210603
  Transmission Date: 20210717
  Serious: Yes (Death)
  Sender: FDA-Public Use
  Company Number: None

PATIENT
  Sex: Female

DRUGS (18)
  1. LOSARTAN 50MG [Concomitant]
     Active Substance: LOSARTAN
  2. SUCRALFATE 1 GM [Concomitant]
  3. TACROLIMUS. [Suspect]
     Active Substance: TACROLIMUS
     Indication: RENAL TRANSPLANT
     Route: 048
  4. TERAZOSIN [Concomitant]
     Active Substance: TERAZOSIN HYDROCHLORIDE
  5. PRAVASTATIN. [Concomitant]
     Active Substance: PRAVASTATIN
  6. TACROLIMUS. [Suspect]
     Active Substance: TACROLIMUS
     Indication: IMMUNOSUPPRESSANT DRUG THERAPY
     Route: 048
  7. ZYRTEC [Concomitant]
     Active Substance: CETIRIZINE HYDROCHLORIDE
  8. SULF?TMT 400?80MG [Concomitant]
  9. PREDNISONE 10MG [Concomitant]
     Active Substance: PREDNISONE
  10. CARVEDILOL 12.5MG [Concomitant]
     Active Substance: CARVEDILOL
  11. FAMOTIDINE 20MG [Concomitant]
     Active Substance: FAMOTIDINE
  12. BASAGLAR [Concomitant]
     Active Substance: INSULIN GLARGINE
  13. HYDROCODONE/APAP 10/325MG [Concomitant]
  14. TRULICITY [Concomitant]
     Active Substance: DULAGLUTIDE
  15. XIGDUO XR 5/1000MG [Concomitant]
  16. FEMARA [Concomitant]
     Active Substance: LETROZOLE
  17. ASPIRIN EC 325MG [Concomitant]
     Active Substance: ASPIRIN
  18. HYDRALAZINE 25MG [Concomitant]
     Active Substance: HYDRALAZINE HYDROCHLORIDE

REACTIONS (1)
  - Death [None]
